FAERS Safety Report 11419232 (Version 1)
Quarter: 2015Q3

REPORT INFORMATION
  Report Type: Spontaneous
  Country: BE (occurrence: BE)
  Receive Date: 20150826
  Receipt Date: 20150826
  Transmission Date: 20151125
  Serious: Yes (Other)
  Sender: FDA-Public Use
  Company Number: BE-BIOGENIDEC-2015BI116081

PATIENT
  Sex: Male

DRUGS (2)
  1. BIFITERAL [Concomitant]
     Active Substance: LACTULOSE
     Indication: DIARRHOEA
  2. TYSABRI [Suspect]
     Active Substance: NATALIZUMAB
     Indication: PRODUCT USED FOR UNKNOWN INDICATION
     Route: 042
     Dates: start: 20140912, end: 20141231

REACTIONS (8)
  - Acute respiratory distress syndrome [Not Recovered/Not Resolved]
  - Cytomegalovirus infection [Unknown]
  - Hyperammonaemia [Unknown]
  - Encephalopathy [Unknown]
  - Off label use [Unknown]
  - Pneumocystis jirovecii infection [Unknown]
  - Pneumonitis [Unknown]
  - Respiratory failure [Not Recovered/Not Resolved]
